FAERS Safety Report 22087200 (Version 2)
Quarter: 2023Q2

REPORT INFORMATION
  Report Type: Spontaneous
  Country: JP (occurrence: JP)
  Receive Date: 20230313
  Receipt Date: 20230413
  Transmission Date: 20230721
  Serious: Yes (Other)
  Sender: FDA-Public Use
  Company Number: JP-CHUGAI-2023007924

PATIENT
  Age: 8 Decade

DRUGS (2)
  1. ACTEMRA [Suspect]
     Active Substance: TOCILIZUMAB
     Indication: Rheumatoid arthritis
     Dosage: UNK, ONCE/4WEEKS
     Route: 041
  2. METHOTREXATE [Suspect]
     Active Substance: METHOTREXATE
     Indication: Product used for unknown indication
     Dosage: 6 MILLIGRAM
     Route: 065

REACTIONS (2)
  - Liver disorder [Recovering/Resolving]
  - Epstein-Barr virus infection [Recovering/Resolving]

NARRATIVE: CASE EVENT DATE: 20230101
